FAERS Safety Report 7290214-8 (Version None)
Quarter: 2011Q1

REPORT INFORMATION
  Report Type: 
  Country: None (occurrence: None)
  Receive Date: 20110214
  Receipt Date: 20110209
  Transmission Date: 20110831
  Serious: Yes (Death)
  Sender: FDA-Public Use
  Company Number: PHHY2011JP08578

PATIENT
  Age: 88 Year
  Sex: Male

DRUGS (12)
  1. OLMETEC [Concomitant]
     Dosage: 20 MG, UNK
     Route: 048
  2. MUCOSOLVAN [Concomitant]
     Dosage: 45 MG, UNK
     Route: 048
  3. HOKUNALIN [Concomitant]
     Dosage: 2 MG, UNK
  4. GASMOTIN [Concomitant]
     Route: 048
  5. ADVAIR DISKUS 100/50 [Concomitant]
     Route: 048
  6. LASIX [Concomitant]
     Dosage: 40 MG, UNK
     Route: 048
     Dates: start: 20110114
  7. CIRCANETTEN [Concomitant]
     Route: 048
  8. RASILEZ [Suspect]
     Indication: CARDIAC FAILURE CONGESTIVE
     Dosage: 150 MG, UNK
     Route: 048
     Dates: start: 20110114
  9. AMLODIPINE [Concomitant]
     Dosage: 5 MG, UNK
     Route: 048
  10. SELBEX [Concomitant]
     Dosage: UNK
     Route: 048
  11. NEUROVITAN [Concomitant]
     Route: 048
  12. TAMSULOSIN HYDROCHLORIDE [Concomitant]
     Dosage: 0.2 MG, UNK
     Route: 048

REACTIONS (1)
  - DEATH [None]
